FAERS Safety Report 24362134 (Version 1)
Quarter: 2024Q3

REPORT INFORMATION
  Report Type: Spontaneous
  Country: HR (occurrence: HR)
  Receive Date: 20240925
  Receipt Date: 20240925
  Transmission Date: 20241017
  Serious: Yes (Other)
  Sender: BOEHRINGER INGELHEIM
  Company Number: HR-BoehringerIngelheim-2024-BI-051986

PATIENT
  Age: 62 Year
  Sex: Male

DRUGS (13)
  1. EMPAGLIFLOZIN [Suspect]
     Active Substance: EMPAGLIFLOZIN
     Indication: Type 2 diabetes mellitus
  2. MOXONIDINE [Concomitant]
     Active Substance: MOXONIDINE
     Indication: Product used for unknown indication
  3. perindopil [Concomitant]
     Indication: Product used for unknown indication
     Dosage: PERINDOPRIL/INDAPAMID 8/25 DAILY
  4. nifedipine ret [Concomitant]
     Indication: Product used for unknown indication
  5. BISOPROLOL [Concomitant]
     Active Substance: BISOPROLOL\BISOPROLOL FUMARATE
     Indication: Product used for unknown indication
  6. EPLERENONE [Concomitant]
     Active Substance: EPLERENONE
     Indication: Product used for unknown indication
  7. Insuline glargin [Concomitant]
     Indication: Product used for unknown indication
     Dosage: 12 I.J. DAILY
  8. SITAGLIPTIN [Concomitant]
     Active Substance: SITAGLIPTIN
     Indication: Product used for unknown indication
  9. Kalcitriol [Concomitant]
     Indication: Product used for unknown indication
  10. Perindopril/indapamid [Concomitant]
     Indication: Product used for unknown indication
     Dosage: 8/25 DAILY
  11. LERCANIDIPINE [Concomitant]
     Active Substance: LERCANIDIPINE
     Indication: Product used for unknown indication
  12. FUROSEMIDE [Concomitant]
     Active Substance: FUROSEMIDE
     Indication: Product used for unknown indication
  13. kalinor [Concomitant]
     Indication: Product used for unknown indication

REACTIONS (11)
  - Blood glucose increased [Recovering/Resolving]
  - Glycosylated haemoglobin increased [Recovering/Resolving]
  - Cholelithiasis [Recovering/Resolving]
  - Hepatic lesion [Recovering/Resolving]
  - Cardiac hypertrophy [Unknown]
  - Renal failure [Recovering/Resolving]
  - Dyslipidaemia [Recovering/Resolving]
  - Hypokalaemia [Recovering/Resolving]
  - Primary hyperaldosteronism [Unknown]
  - Obesity [Recovering/Resolving]
  - Pulmonary arterial hypertension [Unknown]
